FAERS Safety Report 18794047 (Version 1)
Quarter: 2021Q1

REPORT INFORMATION
  Report Type: Spontaneous
  Country: US (occurrence: US)
  Receive Date: 20210127
  Receipt Date: 20210127
  Transmission Date: 20210419
  Serious: Yes (Other)
  Sender: FDA-Public Use
  Company Number: US-APOTEX-2021AP001605

PATIENT
  Age: 29 Year
  Sex: Male

DRUGS (4)
  1. OLANZAPINE. [Suspect]
     Active Substance: OLANZAPINE
     Indication: PSYCHOTIC DISORDER
     Dosage: UNK
     Route: 065
  2. OLANZAPINE. [Suspect]
     Active Substance: OLANZAPINE
     Dosage: UNK (HAD INCREASED TO 20 MG OVER THE PAST MONTH)
     Route: 065
  3. BENZTROPINE [BENZATROPINE] [Concomitant]
     Active Substance: BENZTROPINE
     Indication: MOVEMENT DISORDER
     Dosage: 1 MILLIGRAM
     Route: 065
  4. OLANZAPINE. [Suspect]
     Active Substance: OLANZAPINE
     Dosage: 20 MILLIGRAM (HE WAS ONLY TAKING IT TWICE PER WEEK, RATHER THAN NIGHTLY AS PRESCRIBED)
     Route: 065

REACTIONS (5)
  - Suicide attempt [Unknown]
  - Treatment noncompliance [Unknown]
  - Sedation [Unknown]
  - Psychotic disorder [Unknown]
  - Impaired work ability [Unknown]
